FAERS Safety Report 20628443 (Version 1)
Quarter: 2022Q1

REPORT INFORMATION
  Report Type: Spontaneous
  Country: AU (occurrence: AU)
  Receive Date: 20220323
  Receipt Date: 20220323
  Transmission Date: 20220423
  Serious: Yes (Other)
  Sender: FDA-Public Use
  Company Number: AU-NOVARTISPH-NVSC2022AU059866

PATIENT

DRUGS (41)
  1. OFATUMUMAB [Suspect]
     Active Substance: OFATUMUMAB
     Indication: Central nervous system lymphoma
     Dosage: UNK
     Route: 065
  2. OFATUMUMAB [Suspect]
     Active Substance: OFATUMUMAB
     Indication: Marginal zone lymphoma
  3. OFATUMUMAB [Suspect]
     Active Substance: OFATUMUMAB
     Indication: Mantle cell lymphoma
  4. CARBOPLATIN [Suspect]
     Active Substance: CARBOPLATIN
     Indication: Central nervous system lymphoma
     Dosage: UNK
     Route: 065
  5. CARBOPLATIN [Suspect]
     Active Substance: CARBOPLATIN
     Indication: Marginal zone lymphoma
  6. CARBOPLATIN [Suspect]
     Active Substance: CARBOPLATIN
     Indication: Mantle cell lymphoma
  7. CARBOPLATIN [Suspect]
     Active Substance: CARBOPLATIN
     Indication: Chronic lymphocytic leukaemia
  8. DEXAMETHASONE [Suspect]
     Active Substance: DEXAMETHASONE
     Indication: Central nervous system lymphoma
     Dosage: UNK
     Route: 065
  9. DOXYCYCLINE [Suspect]
     Active Substance: DOXYCYCLINE
     Indication: Central nervous system lymphoma
     Dosage: UNK
     Route: 065
  10. DOXYCYCLINE [Suspect]
     Active Substance: DOXYCYCLINE
     Indication: Marginal zone lymphoma
  11. DOXYCYCLINE [Suspect]
     Active Substance: DOXYCYCLINE
     Indication: Mantle cell lymphoma
  12. DOXYCYCLINE [Suspect]
     Active Substance: DOXYCYCLINE
     Indication: Chronic lymphocytic leukaemia
  13. ETOPOSIDE [Suspect]
     Active Substance: ETOPOSIDE
     Indication: Central nervous system lymphoma
     Dosage: UNK
     Route: 065
  14. ETOPOSIDE [Suspect]
     Active Substance: ETOPOSIDE
     Indication: Marginal zone lymphoma
  15. ETOPOSIDE [Suspect]
     Active Substance: ETOPOSIDE
     Indication: Mantle cell lymphoma
  16. ETOPOSIDE [Suspect]
     Active Substance: ETOPOSIDE
     Indication: Chronic lymphocytic leukaemia
  17. IFOSFAMIDE [Suspect]
     Active Substance: IFOSFAMIDE
     Indication: Central nervous system lymphoma
     Dosage: UNK
     Route: 065
  18. IFOSFAMIDE [Suspect]
     Active Substance: IFOSFAMIDE
     Indication: Marginal zone lymphoma
  19. IFOSFAMIDE [Suspect]
     Active Substance: IFOSFAMIDE
     Indication: Mantle cell lymphoma
  20. IFOSFAMIDE [Suspect]
     Active Substance: IFOSFAMIDE
     Indication: Chronic lymphocytic leukaemia
  21. METHOTREXATE [Suspect]
     Active Substance: METHOTREXATE
     Indication: Central nervous system lymphoma
     Dosage: UNK
     Route: 065
  22. METHOTREXATE [Suspect]
     Active Substance: METHOTREXATE
     Indication: Marginal zone lymphoma
  23. METHOTREXATE [Suspect]
     Active Substance: METHOTREXATE
     Indication: Mantle cell lymphoma
  24. METHOTREXATE [Suspect]
     Active Substance: METHOTREXATE
     Indication: Chronic lymphocytic leukaemia
  25. RITUXIMAB [Suspect]
     Active Substance: RITUXIMAB
     Indication: Central nervous system lymphoma
     Dosage: UNK
     Route: 065
  26. RITUXIMAB [Suspect]
     Active Substance: RITUXIMAB
     Indication: Marginal zone lymphoma
  27. RITUXIMAB [Suspect]
     Active Substance: RITUXIMAB
     Indication: Mantle cell lymphoma
  28. RITUXIMAB [Suspect]
     Active Substance: RITUXIMAB
     Indication: Chronic lymphocytic leukaemia
  29. TEMOZOLOMIDE [Suspect]
     Active Substance: TEMOZOLOMIDE
     Indication: Central nervous system lymphoma
     Dosage: UNK
     Route: 065
  30. TEMOZOLOMIDE [Suspect]
     Active Substance: TEMOZOLOMIDE
     Indication: Marginal zone lymphoma
  31. TEMOZOLOMIDE [Suspect]
     Active Substance: TEMOZOLOMIDE
     Indication: Mantle cell lymphoma
  32. TEMOZOLOMIDE [Suspect]
     Active Substance: TEMOZOLOMIDE
     Indication: Chronic lymphocytic leukaemia
  33. IMBRUVICA [Suspect]
     Active Substance: IBRUTINIB
     Indication: Central nervous system lymphoma
     Dosage: 420 MG
     Route: 048
  34. IMBRUVICA [Suspect]
     Active Substance: IBRUTINIB
     Indication: Marginal zone lymphoma
     Dosage: 560 MG
     Route: 048
  35. IMBRUVICA [Suspect]
     Active Substance: IBRUTINIB
     Indication: Mantle cell lymphoma
  36. IMBRUVICA [Suspect]
     Active Substance: IBRUTINIB
     Indication: Chronic lymphocytic leukaemia
  37. OBINUTUZUMAB [Suspect]
     Active Substance: OBINUTUZUMAB
     Indication: Central nervous system lymphoma
     Dosage: UNK
     Route: 042
  38. OBINUTUZUMAB [Suspect]
     Active Substance: OBINUTUZUMAB
     Indication: Marginal zone lymphoma
  39. OBINUTUZUMAB [Suspect]
     Active Substance: OBINUTUZUMAB
     Indication: Mantle cell lymphoma
  40. OBINUTUZUMAB [Suspect]
     Active Substance: OBINUTUZUMAB
     Indication: Chronic lymphocytic leukaemia
  41. VENETOCLAX [Suspect]
     Active Substance: VENETOCLAX
     Indication: Central nervous system lymphoma
     Dosage: UNK
     Route: 048

REACTIONS (9)
  - Anaemia [Unknown]
  - Aspergillus infection [Unknown]
  - Atrial fibrillation [Unknown]
  - Cytopenia [Unknown]
  - Febrile neutropenia [Unknown]
  - Haemorrhage [Unknown]
  - Infection [Unknown]
  - Neutropenia [Unknown]
  - Thrombocytopenia [Unknown]
